FAERS Safety Report 23517242 (Version 1)
Quarter: 2024Q1

REPORT INFORMATION
  Report Type: Spontaneous
  Country: US (occurrence: None)
  Receive Date: 20240212
  Receipt Date: 20240212
  Transmission Date: 20240410
  Serious: Yes (Death, Hospitalization)
  Sender: FDA-Public Use
  Company Number: None

PATIENT
  Age: 72 Year
  Sex: Male

DRUGS (2)
  1. AMBRISENTAN [Suspect]
     Active Substance: AMBRISENTAN
     Indication: Pulmonary hypertension
     Dosage: 5MG QD ORAL?
     Route: 048
     Dates: start: 20230711, end: 20230831
  2. SILDENAFIL [Suspect]
     Active Substance: SILDENAFIL

REACTIONS (9)
  - Ventricular tachycardia [None]
  - Atrial fibrillation [None]
  - Clostridium difficile colitis [None]
  - Acute kidney injury [None]
  - Acidosis [None]
  - Septic shock [None]
  - Gastrointestinal haemorrhage [None]
  - Anaemia [None]
  - Respiratory failure [None]

NARRATIVE: CASE EVENT DATE: 20230831
